FAERS Safety Report 24883480 (Version 1)
Quarter: 2025Q1

REPORT INFORMATION
  Report Type: Spontaneous
  Country: US (occurrence: None)
  Receive Date: 20250123
  Receipt Date: 20250123
  Transmission Date: 20250409
  Serious: Yes (Life-Threatening, Other)
  Sender: FDA-CTU
  Company Number: None

PATIENT
  Age: 41 Year
  Sex: Female
  Weight: 65.25 kg

DRUGS (1)
  1. SUBLOCADE [Suspect]
     Active Substance: BUPRENORPHINE
     Indication: Drug dependence
     Dosage: OTHER FREQUENCY : 1 A MONTH;?OTHER ROUTE : INJECTED INTO FAT IN STOMACH;?
     Route: 050

REACTIONS (3)
  - Tooth loss [None]
  - Tooth fracture [None]
  - Tooth injury [None]

NARRATIVE: CASE EVENT DATE: 20230624
